FAERS Safety Report 10311985 (Version 2)
Quarter: 2014Q3

REPORT INFORMATION
  Report Type: Spontaneous
  Country: IT (occurrence: None)
  Receive Date: 20140714
  Receipt Date: 20140813
  Transmission Date: 20150326
  Serious: Yes (Other)
  Sender: FDA-Public Use
  Company Number: AUR-APL-2014-07347

PATIENT
  Age: 45 Year
  Sex: Male

DRUGS (2)
  1. FLUVOXAMINE [Concomitant]
     Active Substance: FLUVOXAMINE
  2. PAROXETINE 20MG (PAROXETINE) UNKNOWN, 20MG [Suspect]
     Active Substance: PAROXETINE\PAROXETINE HYDROCHLORIDE
     Indication: DEPRESSION

REACTIONS (14)
  - Insomnia [None]
  - Paraesthesia [None]
  - Memory impairment [None]
  - Impulsive behaviour [None]
  - Anxiety [None]
  - Nervousness [None]
  - Hypoaesthesia [None]
  - Aggression [None]
  - Pathological gambling [None]
  - Elevated mood [None]
  - Visual impairment [None]
  - Indifference [None]
  - Drug withdrawal syndrome [None]
  - Gambling [None]
